FAERS Safety Report 7222453-6 (Version None)
Quarter: 2011Q1

REPORT INFORMATION
  Report Type: 
  Country: None (occurrence: None)
  Receive Date: 20110112
  Receipt Date: 20101230
  Transmission Date: 20110831
  Serious: Yes (Death, Hospitalization)
  Sender: FDA-Public Use
  Company Number: US-ACTELION-A-US2009-28088

PATIENT

DRUGS (1)
  1. BOSENTAN TABLET UNKNOWN US MG [Suspect]
     Indication: PULMONARY ARTERIAL HYPERTENSION
     Dosage: UNK
     Route: 048
     Dates: start: 20080303, end: 20090401

REACTIONS (4)
  - PNEUMONIA ASPIRATION [None]
  - ASTHENIA [None]
  - PULMONARY HYPERTENSION [None]
  - PNEUMONIA [None]
